FAERS Safety Report 19596981 (Version 1)
Quarter: 2021Q3

REPORT INFORMATION
  Report Type: Spontaneous
  Country: SI (occurrence: SI)
  Receive Date: 20210722
  Receipt Date: 20210722
  Transmission Date: 20211014
  Serious: Yes (Other)
  Sender: FDA-Public Use
  Company Number: SI-ASTRAZENECA-2021A623641

PATIENT
  Age: 59 Year
  Sex: Female

DRUGS (3)
  1. SILYBUM MARIANUM [Concomitant]
     Active Substance: DIETARY SUPPLEMENT\HERBALS\MILK THISTLE
     Dosage: 120 MG DAILY FOR THE LAST MONTH
     Route: 065
  2. ROSUVASTATIN. [Suspect]
     Active Substance: ROSUVASTATIN
     Indication: DYSLIPIDAEMIA
     Dosage: 40.0MG UNKNOWN
     Route: 048
  3. PERINDOPRIL/INDAPAMIDE [Concomitant]
     Active Substance: INDAPAMIDE\PERINDOPRIL
     Indication: HYPERTENSION
     Dosage: 4/1.25 MG
     Route: 065

REACTIONS (3)
  - Liver injury [Recovering/Resolving]
  - Immune-mediated myositis [Recovering/Resolving]
  - Acute kidney injury [Recovering/Resolving]
